APPROVED DRUG PRODUCT: DICLOFENAC POTASSIUM
Active Ingredient: DICLOFENAC POTASSIUM
Strength: 50MG
Dosage Form/Route: TABLET;ORAL
Application: A075229 | Product #001 | TE Code: AB
Applicant: RUBICON RESEARCH LTD
Approved: Nov 20, 1998 | RLD: No | RS: Yes | Type: RX